FAERS Safety Report 13943762 (Version 3)
Quarter: 2017Q4

REPORT INFORMATION
  Report Type: Spontaneous
  Country: US (occurrence: US)
  Receive Date: 20170907
  Receipt Date: 20171026
  Transmission Date: 20180320
  Serious: Yes (Other)
  Sender: FDA-Public Use
  Company Number: US-LUNDBECK-DKLU2034171

PATIENT
  Sex: Female

DRUGS (4)
  1. NORTHERA [Suspect]
     Active Substance: DROXIDOPA
     Indication: ORTHOSTATIC HYPOTENSION
  2. NORTHERA [Suspect]
     Active Substance: DROXIDOPA
     Indication: AUTONOMIC NERVOUS SYSTEM IMBALANCE
  3. NORTHERA [Suspect]
     Active Substance: DROXIDOPA
     Indication: HYPOTENSION
  4. NORTHERA [Suspect]
     Active Substance: DROXIDOPA
     Indication: POSTURAL ORTHOSTATIC TACHYCARDIA SYNDROME
     Dates: start: 20160322

REACTIONS (12)
  - Blood pressure fluctuation [Unknown]
  - Sinusitis [Unknown]
  - Musculoskeletal discomfort [Unknown]
  - Vulvovaginitis [Unknown]
  - Viral infection [Unknown]
  - Dizziness [Unknown]
  - Osteonecrosis [Unknown]
  - Tachycardia [Unknown]
  - Fatigue [Unknown]
  - Upper respiratory tract infection [Unknown]
  - Hypertonic bladder [Unknown]
  - Headache [Unknown]

NARRATIVE: CASE EVENT DATE: 2017
